FAERS Safety Report 4384807-5 (Version None)
Quarter: 2004Q2

REPORT INFORMATION
  Report Type: 
  Country: None (occurrence: None)
  Receive Date: 20040621
  Receipt Date: 20040614
  Transmission Date: 20050107
  Serious: Yes (Hospitalization)
  Sender: FDA-Public Use
  Company Number: DEWYE821914JUN04

PATIENT
  Age: 24 Year
  Sex: Female

DRUGS (5)
  1. VENLAFAXINE HCL [Suspect]
     Dosage: 75 MG 10X PER 1 DAY ORAL
     Route: 048
     Dates: start: 20040612, end: 20040612
  2. DOXEPIN HCL [Suspect]
     Dosage: 100 MG 10X PER 1 DAY ORAL
     Route: 048
     Dates: start: 20040612, end: 20040612
  3. BUSPIRONE HCL [Suspect]
     Dosage: ORAL
     Route: 048
     Dates: start: 20040612, end: 20040612
  4. CANNABIS (CANNABIS, , 0) [Suspect]
     Dosage: INHALATION
     Route: 055
     Dates: start: 20040612, end: 20040612
  5. DIAZEPAM [Suspect]
     Dosage: 3-6 TABLETS ORAL
     Route: 048
     Dates: start: 20040612, end: 20040612

REACTIONS (2)
  - INTENTIONAL OVERDOSE [None]
  - MEMORY IMPAIRMENT [None]
